FAERS Safety Report 23437353 (Version 1)
Quarter: 2024Q1

REPORT INFORMATION
  Report Type: Spontaneous
  Country: US (occurrence: None)
  Receive Date: 20240123
  Receipt Date: 20240123
  Transmission Date: 20240410
  Serious: Yes (Life-Threatening)
  Sender: FDA-Public Use
  Company Number: None

PATIENT
  Age: 72 Year
  Sex: Female
  Weight: 59.85 kg

DRUGS (3)
  1. AMPHOTERICIN B\TERBINAFINE\THYMOL\UREA [Suspect]
     Active Substance: AMPHOTERICIN B\TERBINAFINE\THYMOL\UREA
     Indication: Onychomycosis
     Route: 061
     Dates: start: 20231211, end: 20231212
  2. CALTRATE [Concomitant]
     Active Substance: CALCIUM CARBONATE
  3. Centrum Vitamins [Concomitant]

REACTIONS (1)
  - Anaphylactic reaction [None]

NARRATIVE: CASE EVENT DATE: 20231212
